FAERS Safety Report 7510376-4 (Version None)
Quarter: 2011Q2

REPORT INFORMATION
  Report Type: 
  Country: None (occurrence: None)
  Receive Date: 20110527
  Receipt Date: 20110516
  Transmission Date: 20111010
  Serious: Yes (Other)
  Sender: FDA-Public Use
  Company Number: JP-WATSON-2011-06941

PATIENT
  Age: 78 Year
  Sex: Female

DRUGS (3)
  1. CARBOPLATIN [Suspect]
     Indication: SMALL CELL LUNG CANCER METASTATIC
     Dosage: 300 MG/M2, QMONTHLY, DAY 1
     Route: 042
  2. AMRUBICIN [Suspect]
     Indication: SMALL CELL LUNG CANCER METASTATIC
     Dosage: 35 MG/M2, ON DAYS 1-3
  3. ETOPOSIDE [Suspect]
     Indication: SMALL CELL LUNG CANCER METASTATIC
     Dosage: 50 MG/M2, QMONTHLY, DAYS 1 AND 3
     Route: 042

REACTIONS (4)
  - NEUTROPENIA [None]
  - DECREASED APPETITE [None]
  - THROMBOCYTOPENIA [None]
  - FATIGUE [None]
